FAERS Safety Report 17307679 (Version 3)
Quarter: 2020Q1

REPORT INFORMATION
  Report Type: Report from Study
  Country: US (occurrence: US)
  Receive Date: 20200123
  Receipt Date: 20200217
  Transmission Date: 20200409
  Serious: Yes (Other)
  Sender: FDA-Public Use
  Company Number: US-TAKEDA-2020TUS003795

PATIENT
  Age: 71 Year
  Sex: Female

DRUGS (1)
  1. VEDOLIZUMAB [Suspect]
     Active Substance: VEDOLIZUMAB
     Indication: COLITIS ULCERATIVE
     Dosage: 300 MILLIGRAM
     Route: 042

REACTIONS (3)
  - Fall [Unknown]
  - Nausea [Unknown]
  - Upper limb fracture [Unknown]

NARRATIVE: CASE EVENT DATE: 20191120
